FAERS Safety Report 8029152-1 (Version None)
Quarter: 2012Q1

REPORT INFORMATION
  Report Type: 
  Country: None (occurrence: None)
  Receive Date: 20120106
  Receipt Date: 20120103
  Transmission Date: 20120608
  Serious: Yes (Hospitalization, Other)
  Sender: FDA-Public Use
  Company Number: PHEH2011US07694

PATIENT
  Sex: Female
  Weight: 117.46 kg

DRUGS (18)
  1. CICLESONIDE [Concomitant]
     Dosage: 50 MCG SPRAY
  2. VITAMIN D [Concomitant]
  3. LASIX [Concomitant]
     Dosage: 40 MG TABLET
  4. INFLUENZA VACCINE [Concomitant]
     Dosage: UNK UKN, UNK
     Dates: start: 20111115
  5. ARIMIDEX [Concomitant]
     Dosage: 1 MG TABLET
  6. TOPROL-XL [Concomitant]
     Dosage: 100 MG XL TABLET
  7. NEURONTIN [Concomitant]
     Dosage: 300 MG CAPSULE
  8. POTASSIUM CHLORIDE [Concomitant]
     Dosage: 20 MEQ TABLET
  9. FLONASE [Concomitant]
     Indication: HYPERSENSITIVITY
  10. VITAMIN D [Concomitant]
     Dosage: 2000 UNIT TABLET
  11. VITAMIN B-12 [Concomitant]
     Dosage: 1000 MCG/ML
  12. IRON [Concomitant]
     Dosage: 325 MG (65 MG IRON) TABLET
  13. RECLAST [Suspect]
     Indication: OSTEOPOROSIS
     Dosage: 5 MG, UNK
     Route: 042
     Dates: start: 20101025
  14. FOLVITE [Concomitant]
     Dosage: 400 MCG TABLET
  15. PRAVACHOL [Concomitant]
     Dosage: 20 MG TABLET
  16. HYZAAR [Concomitant]
     Dosage: 25-100 MG PER TABLET
  17. ADVAIR DISKUS 100/50 [Concomitant]
  18. MULTIVITAMIN [Concomitant]

REACTIONS (14)
  - RHINORRHOEA [None]
  - FATIGUE [None]
  - APPETITE DISORDER [None]
  - DRY SKIN [None]
  - BREAST CANCER [None]
  - RADIATION NEUROPATHY [None]
  - OVERWEIGHT [None]
  - DISTURBANCE IN ATTENTION [None]
  - NASAL CONGESTION [None]
  - UPPER-AIRWAY COUGH SYNDROME [None]
  - COUGH [None]
  - PAIN [None]
  - TENDERNESS [None]
  - SLEEP DISORDER [None]
